FAERS Safety Report 9632129 (Version 2)
Quarter: 2014Q2

REPORT INFORMATION
  Report Type: Spontaneous
  Country: US (occurrence: US)
  Receive Date: 20131018
  Receipt Date: 20140617
  Transmission Date: 20141212
  Serious: Yes (Other)
  Sender: FDA-Public Use
  Company Number: US-PFIZER INC-2013297453

PATIENT
  Age: 54 Year
  Sex: Female
  Weight: 90.25 kg

DRUGS (4)
  1. LIPITOR [Suspect]
     Indication: LOW DENSITY LIPOPROTEIN INCREASED
     Dosage: 10 MG, DAILY
     Route: 048
     Dates: start: 1998
  2. LIPITOR [Suspect]
     Indication: CARDIOVASCULAR EVENT PROPHYLAXIS
     Dosage: 20 MG, DAILY
     Route: 048
     Dates: start: 1999, end: 199912
  3. LIPITOR [Suspect]
     Dosage: 40 MG, DAILY
     Route: 048
     Dates: start: 199912, end: 2004
  4. LIPITOR [Suspect]
     Dosage: 40 MG, DAILY
     Route: 048
     Dates: start: 2011, end: 2012

REACTIONS (5)
  - Type 2 diabetes mellitus [Not Recovered/Not Resolved]
  - Transient ischaemic attack [Not Recovered/Not Resolved]
  - Cataract [Unknown]
  - Neuropathy peripheral [Not Recovered/Not Resolved]
  - Cystitis [Not Recovered/Not Resolved]
